FAERS Safety Report 8516329-1 (Version None)
Quarter: 2012Q3

REPORT INFORMATION
  Report Type: 
  Country: None (occurrence: None)
  Receive Date: 20120718
  Receipt Date: 20120713
  Transmission Date: 20120928
  Serious: Yes (Other)
  Sender: FDA-Public Use
  Company Number: US-AMGEN-USASP2012043785

PATIENT
  Age: 58 Year
  Sex: Female

DRUGS (12)
  1. VITAMIN D [Concomitant]
     Dosage: UNK
  2. GLYBURIDE [Concomitant]
  3. CENTRUM SILVER                     /01292501/ [Concomitant]
  4. MULTIVITAMIN                       /00097801/ [Concomitant]
  5. ALLEGRA [Concomitant]
     Dosage: UNK
  6. LASIX [Concomitant]
     Dosage: UNK
  7. PROLIA [Suspect]
     Indication: OSTEOPOROSIS
     Dates: start: 20110823
  8. LIPITOR [Concomitant]
     Dosage: UNK
  9. FLONASE [Concomitant]
  10. METFORMIN HYDROCHLORIDE [Concomitant]
  11. METOPROLOL TARTRATE [Concomitant]
  12. COZAAR [Concomitant]
     Dosage: UNK

REACTIONS (4)
  - TACHYCARDIA [None]
  - CHEST PAIN [None]
  - HYPERTENSION [None]
  - PULMONARY HYPERTENSION [None]
